FAERS Safety Report 16614858 (Version 1)
Quarter: 2019Q3

REPORT INFORMATION
  Report Type: Spontaneous
  Country: US (occurrence: US)
  Receive Date: 20190723
  Receipt Date: 20190723
  Transmission Date: 20191004
  Serious: Yes (Hospitalization)
  Sender: FDA-Public Use
  Company Number: US-ROCHE-2360254

PATIENT
  Sex: Female

DRUGS (3)
  1. PULMOZYME [Suspect]
     Active Substance: DORNASE ALFA
     Indication: ATELECTASIS
     Route: 065
     Dates: start: 201905
  2. MUCOMYST [ACETYLCYSTEINE] [Concomitant]
     Indication: OFF LABEL USE
     Dosage: ALTERNATES WITH PULMOZYME FOR THERAPY ;ONGOING: UNKNOWN
     Route: 065
  3. PULMOZYME [Suspect]
     Active Substance: DORNASE ALFA
     Indication: OFF LABEL USE
     Route: 065
     Dates: start: 201906

REACTIONS (3)
  - Sepsis [Unknown]
  - Intentional product use issue [Unknown]
  - Off label use [Unknown]
